FAERS Safety Report 4727739-2 (Version None)
Quarter: 2005Q3

REPORT INFORMATION
  Report Type: 
  Country: None (occurrence: None)
  Receive Date: 20050727
  Receipt Date: 20050713
  Transmission Date: 20060218
  Serious: Yes (Hospitalization)
  Sender: FDA-Public Use
  Company Number: SUSI-2005-00573

PATIENT
  Age: 34 Year
  Sex: Male

DRUGS (21)
  1. PENTASA [Suspect]
     Indication: CROHN'S DISEASE
     Route: 048
  2. REMICADE [Suspect]
     Indication: CROHN'S DISEASE
     Route: 042
     Dates: start: 20040414, end: 20040414
  3. REMICADE [Suspect]
     Indication: CROHN'S DISEASE
     Route: 042
     Dates: start: 20040426, end: 20040426
  4. REMICADE [Suspect]
     Indication: CROHN'S DISEASE
     Route: 042
     Dates: start: 20040524, end: 20040524
  5. REMICADE [Suspect]
     Indication: CROHN'S DISEASE
     Route: 042
     Dates: start: 20040910, end: 20040910
  6. REMICADE [Suspect]
     Indication: CROHN'S DISEASE
     Route: 042
     Dates: start: 20050119, end: 20050119
  7. REMICADE [Suspect]
     Indication: CROHN'S DISEASE
     Route: 042
     Dates: start: 20050202, end: 20050202
  8. REMICADE [Suspect]
     Indication: CROHN'S DISEASE
     Route: 042
     Dates: start: 20050404, end: 20050404
  9. REMICADE [Suspect]
     Indication: CROHN'S DISEASE
     Route: 042
     Dates: start: 20050602, end: 20050602
  10. PREDNISONE [Suspect]
     Indication: CROHN'S DISEASE
     Route: 048
  11. IMURAN [Suspect]
     Indication: CROHN'S DISEASE
     Route: 048
  12. FLAGYL [Suspect]
     Indication: WOUND ABSCESS
     Route: 048
  13. PARENTAL NUTRITION [Concomitant]
  14. LACTOBACILLUS BIFIDUS, LYOPHILIZED(LACTOBACILLUS BIFIDUS, LYOPHILIZED) [Concomitant]
  15. ELENTAL (VITAMINS NOS) [Concomitant]
  16. MINOCYCLINE HYDROCHLORIDE [Concomitant]
  17. VALPROATE SODIUM [Concomitant]
  18. DIAZEPAM [Concomitant]
  19. ALFACALCIDOL (ALFACALCIDOL) [Concomitant]
  20. HYDROCORTISONE [Concomitant]
  21. CETIRIZINE HCL [Concomitant]

REACTIONS (6)
  - CONDITION AGGRAVATED [None]
  - CROHN'S DISEASE [None]
  - INFECTION [None]
  - PNEUMONIA [None]
  - URINARY TRACT INFECTION [None]
  - WHITE BLOOD CELL COUNT INCREASED [None]
